FAERS Safety Report 7543523-9 (Version None)
Quarter: 2011Q2

REPORT INFORMATION
  Report Type: 
  Country: None (occurrence: None)
  Receive Date: 20110613
  Receipt Date: 20010717
  Transmission Date: 20111010
  Serious: Yes (Hospitalization)
  Sender: FDA-Public Use
  Company Number: PHEH2001US06091

PATIENT
  Sex: Male

DRUGS (4)
  1. CARDURA [Concomitant]
  2. CELEBREX [Concomitant]
  3. AGGRENOX [Concomitant]
  4. EXELON [Suspect]
     Indication: DEMENTIA ALZHEIMER'S TYPE
     Dosage: 6 MG, BID
     Dates: start: 20010308

REACTIONS (3)
  - BRAIN OEDEMA [None]
  - CONVULSION [None]
  - SYNCOPE [None]
